FAERS Safety Report 25325078 (Version 5)
Quarter: 2025Q3

REPORT INFORMATION
  Report Type: Spontaneous
  Country: GB (occurrence: GB)
  Receive Date: 20250516
  Receipt Date: 20250822
  Transmission Date: 20251021
  Serious: Yes (Death, Life-Threatening, Other)
  Sender: MYLAN
  Company Number: None

PATIENT
  Age: 59 Year
  Sex: Female

DRUGS (60)
  1. ARIPIPRAZOLE [Interacting]
     Active Substance: ARIPIPRAZOLE
     Indication: Product used for unknown indication
  2. ARIPIPRAZOLE [Interacting]
     Active Substance: ARIPIPRAZOLE
     Route: 065
  3. ARIPIPRAZOLE [Interacting]
     Active Substance: ARIPIPRAZOLE
     Route: 065
  4. ARIPIPRAZOLE [Interacting]
     Active Substance: ARIPIPRAZOLE
  5. FUROSEMIDE [Interacting]
     Active Substance: FUROSEMIDE
     Indication: Chronic obstructive pulmonary disease
     Dosage: 40 MILLIGRAM, BID (40 MG BD)
     Dates: start: 20230525, end: 20230526
  6. FUROSEMIDE [Interacting]
     Active Substance: FUROSEMIDE
     Dosage: 40 MILLIGRAM, BID (40 MG BD)
     Route: 065
     Dates: start: 20230525, end: 20230526
  7. FUROSEMIDE [Interacting]
     Active Substance: FUROSEMIDE
     Dosage: 40 MILLIGRAM, BID (40 MG BD)
     Route: 065
     Dates: start: 20230525, end: 20230526
  8. FUROSEMIDE [Interacting]
     Active Substance: FUROSEMIDE
     Dosage: 40 MILLIGRAM, BID (40 MG BD)
     Dates: start: 20230525, end: 20230526
  9. MIRABEGRON [Concomitant]
     Active Substance: MIRABEGRON
  10. MIRABEGRON [Concomitant]
     Active Substance: MIRABEGRON
     Route: 065
  11. MIRABEGRON [Concomitant]
     Active Substance: MIRABEGRON
     Route: 065
  12. MIRABEGRON [Concomitant]
     Active Substance: MIRABEGRON
  13. BECLOMETHASONE\FORMOTEROL [Concomitant]
     Active Substance: BECLOMETHASONE\FORMOTEROL
  14. BECLOMETHASONE\FORMOTEROL [Concomitant]
     Active Substance: BECLOMETHASONE\FORMOTEROL
     Route: 065
  15. BECLOMETHASONE\FORMOTEROL [Concomitant]
     Active Substance: BECLOMETHASONE\FORMOTEROL
     Route: 065
  16. BECLOMETHASONE\FORMOTEROL [Concomitant]
     Active Substance: BECLOMETHASONE\FORMOTEROL
  17. ALBUTEROL [Concomitant]
     Active Substance: ALBUTEROL
  18. ALBUTEROL [Concomitant]
     Active Substance: ALBUTEROL
     Route: 065
  19. ALBUTEROL [Concomitant]
     Active Substance: ALBUTEROL
     Route: 065
  20. ALBUTEROL [Concomitant]
     Active Substance: ALBUTEROL
  21. FLUOXETINE [Concomitant]
     Active Substance: FLUOXETINE HYDROCHLORIDE
  22. FLUOXETINE [Concomitant]
     Active Substance: FLUOXETINE HYDROCHLORIDE
     Route: 065
  23. FLUOXETINE [Concomitant]
     Active Substance: FLUOXETINE HYDROCHLORIDE
     Route: 065
  24. FLUOXETINE [Concomitant]
     Active Substance: FLUOXETINE HYDROCHLORIDE
  25. DAPAGLIFLOZIN [Concomitant]
     Active Substance: DAPAGLIFLOZIN
  26. DAPAGLIFLOZIN [Concomitant]
     Active Substance: DAPAGLIFLOZIN
     Route: 065
  27. DAPAGLIFLOZIN [Concomitant]
     Active Substance: DAPAGLIFLOZIN
     Route: 065
  28. DAPAGLIFLOZIN [Concomitant]
     Active Substance: DAPAGLIFLOZIN
  29. ATORVASTATIN [Concomitant]
     Active Substance: ATORVASTATIN
  30. ATORVASTATIN [Concomitant]
     Active Substance: ATORVASTATIN
     Route: 065
  31. ATORVASTATIN [Concomitant]
     Active Substance: ATORVASTATIN
     Route: 065
  32. ATORVASTATIN [Concomitant]
     Active Substance: ATORVASTATIN
  33. EDOXABAN [Concomitant]
     Active Substance: EDOXABAN
  34. EDOXABAN [Concomitant]
     Active Substance: EDOXABAN
     Route: 065
  35. EDOXABAN [Concomitant]
     Active Substance: EDOXABAN
     Route: 065
  36. EDOXABAN [Concomitant]
     Active Substance: EDOXABAN
  37. SPIRIVA [Concomitant]
     Active Substance: TIOTROPIUM BROMIDE MONOHYDRATE
  38. SPIRIVA [Concomitant]
     Active Substance: TIOTROPIUM BROMIDE MONOHYDRATE
     Route: 065
  39. SPIRIVA [Concomitant]
     Active Substance: TIOTROPIUM BROMIDE MONOHYDRATE
     Route: 065
  40. SPIRIVA [Concomitant]
     Active Substance: TIOTROPIUM BROMIDE MONOHYDRATE
  41. DULOXETINE [Concomitant]
     Active Substance: DULOXETINE
  42. DULOXETINE [Concomitant]
     Active Substance: DULOXETINE
     Route: 065
  43. DULOXETINE [Concomitant]
     Active Substance: DULOXETINE
     Route: 065
  44. DULOXETINE [Concomitant]
     Active Substance: DULOXETINE
  45. PREGABALIN [Concomitant]
     Active Substance: PREGABALIN
  46. PREGABALIN [Concomitant]
     Active Substance: PREGABALIN
     Route: 065
  47. PREGABALIN [Concomitant]
     Active Substance: PREGABALIN
     Route: 065
  48. PREGABALIN [Concomitant]
     Active Substance: PREGABALIN
  49. SITAGLIPTIN [Concomitant]
     Active Substance: SITAGLIPTIN
  50. SITAGLIPTIN [Concomitant]
     Active Substance: SITAGLIPTIN
     Route: 065
  51. SITAGLIPTIN [Concomitant]
     Active Substance: SITAGLIPTIN
     Route: 065
  52. SITAGLIPTIN [Concomitant]
     Active Substance: SITAGLIPTIN
  53. BUTYLSCOPOLAMINE BROMIDE [Concomitant]
     Active Substance: BUTYLSCOPOLAMINE BROMIDE
  54. BUTYLSCOPOLAMINE BROMIDE [Concomitant]
     Active Substance: BUTYLSCOPOLAMINE BROMIDE
     Route: 065
  55. BUTYLSCOPOLAMINE BROMIDE [Concomitant]
     Active Substance: BUTYLSCOPOLAMINE BROMIDE
     Route: 065
  56. BUTYLSCOPOLAMINE BROMIDE [Concomitant]
     Active Substance: BUTYLSCOPOLAMINE BROMIDE
  57. GLICLAZIDE [Concomitant]
     Active Substance: GLICLAZIDE
  58. GLICLAZIDE [Concomitant]
     Active Substance: GLICLAZIDE
     Route: 065
  59. GLICLAZIDE [Concomitant]
     Active Substance: GLICLAZIDE
     Route: 065
  60. GLICLAZIDE [Concomitant]
     Active Substance: GLICLAZIDE

REACTIONS (5)
  - Torsade de pointes [Fatal]
  - Acute respiratory distress syndrome [Fatal]
  - Drug interaction [Not Recovered/Not Resolved]
  - Pneumonia [Not Recovered/Not Resolved]
  - Spinal cord injury [Unknown]

NARRATIVE: CASE EVENT DATE: 20230525
